FAERS Safety Report 20107514 (Version 2)
Quarter: 2022Q2

REPORT INFORMATION
  Report Type: Spontaneous
  Country: GB (occurrence: GB)
  Receive Date: 20211124
  Receipt Date: 20220407
  Transmission Date: 20220721
  Serious: Yes (Other)
  Sender: FDA-Public Use
  Company Number: None

PATIENT
  Age: 38 Year
  Sex: Male
  Weight: 72 kg

DRUGS (8)
  1. PENICILLIN G SODIUM [Suspect]
     Active Substance: PENICILLIN G SODIUM
     Indication: Ill-defined disorder
     Dosage: 300 MG VIAL
     Route: 065
     Dates: start: 20210420
  2. BUPRENORPHINE [Concomitant]
     Active Substance: BUPRENORPHINE
     Indication: Ill-defined disorder
     Dosage: SINGLE-USE DEVICE
     Route: 065
     Dates: start: 20210920, end: 20210920
  3. IBUPROFEN [Concomitant]
     Active Substance: IBUPROFEN
     Indication: Ill-defined disorder
     Dosage: APPLICATION
     Route: 065
     Dates: start: 20210915, end: 20210920
  4. ACETAMINOPHEN [Concomitant]
     Active Substance: ACETAMINOPHEN
     Indication: Ill-defined disorder
     Dosage: 1-2
     Route: 065
     Dates: start: 20210815, end: 20210815
  5. RISPERIDONE [Concomitant]
     Active Substance: RISPERIDONE
     Indication: Ill-defined disorder
     Dosage: 1 DF
     Route: 065
     Dates: start: 20210920, end: 20211018
  6. RISPERIDONE [Concomitant]
     Active Substance: RISPERIDONE
     Dosage: 16:00
     Route: 065
     Dates: start: 20210920, end: 20211018
  7. TRAZODONE [Concomitant]
     Active Substance: TRAZODONE HYDROCHLORIDE
     Indication: Ill-defined disorder
     Dosage: 1 DF
     Route: 065
     Dates: start: 20210730, end: 20211018
  8. TRAZODONE [Concomitant]
     Active Substance: TRAZODONE HYDROCHLORIDE
     Dosage: 16:00
     Route: 065
     Dates: start: 20210730, end: 20211018

REACTIONS (2)
  - Adverse drug reaction [Recovered/Resolved]
  - Rash [Recovered/Resolved]

NARRATIVE: CASE EVENT DATE: 20211112
